FAERS Safety Report 20678922 (Version 1)
Quarter: 2022Q2

REPORT INFORMATION
  Report Type: Spontaneous
  Country: US (occurrence: US)
  Receive Date: 20220406
  Receipt Date: 20220406
  Transmission Date: 20220720
  Serious: No
  Sender: FDA-Public Use
  Company Number: US-PFIZER INC-2021648987

PATIENT
  Sex: Female

DRUGS (1)
  1. LATANOPROST [Suspect]
     Active Substance: LATANOPROST
     Dosage: ONE DROP IN EACH EYE IN THE MORNING
     Route: 047

REACTIONS (2)
  - Product quality issue [Unknown]
  - Exposure via skin contact [Unknown]
